FAERS Safety Report 8779548 (Version 2)
Quarter: 2012Q4

REPORT INFORMATION
  Report Type: 
  Country: GR (occurrence: GR)
  Receive Date: 20120912
  Receipt Date: 20121002
  Transmission Date: 20130627
  Serious: Yes (Hospitalization)
  Sender: FDA-Public Use
  Company Number: GR-NOVOPROD-359208

PATIENT
  Age: 46 Year
  Sex: Male
  Weight: 126 kg

DRUGS (4)
  1. VICTOZA [Suspect]
     Indication: DIABETES MELLITUS
     Dosage: 1.8 UNK, qd
     Route: 058
     Dates: start: 20120210, end: 2012
  2. LEVEMIR [Concomitant]
     Indication: DIABETES MELLITUS
     Dosage: 17 U, qd
     Route: 058
     Dates: start: 20120517
  3. GLUCOPHAGE [Concomitant]
     Dosage: 1700 mg, qd
     Route: 048
     Dates: start: 2008
  4. SITAGLIPTIN [Concomitant]
     Dosage: UNK
     Dates: start: 2010, end: 20120210

REACTIONS (1)
  - Pancreatic carcinoma metastatic [Not Recovered/Not Resolved]
